FAERS Safety Report 8199069-0 (Version None)
Quarter: 2012Q1

REPORT INFORMATION
  Report Type: 
  Country: None (occurrence: None)
  Receive Date: 20120309
  Receipt Date: 20120306
  Transmission Date: 20120608
  Serious: Yes (Hospitalization)
  Sender: FDA-Public Use
  Company Number: ES-GLAXOSMITHKLINE-B0786443A

PATIENT
  Age: 67 Year
  Sex: Female

DRUGS (4)
  1. LEVOTIROXINA [Suspect]
     Indication: HYPOTHYROIDISM
     Dosage: 25MCG PER DAY
     Route: 048
     Dates: start: 20110101
  2. FLUTICASONE PROPIONATE/SALMETEROL [Suspect]
     Indication: ASTHMA
     Dosage: 2PUFF TWICE PER DAY
     Route: 055
     Dates: start: 20110101
  3. AMIODARONE HCL [Suspect]
     Indication: ATRIAL FIBRILLATION
     Dosage: 200MG PER DAY
     Route: 048
     Dates: start: 20110101, end: 20111007
  4. ALBUTEROL [Suspect]
     Indication: ASTHMA
     Route: 055
     Dates: start: 20110101

REACTIONS (2)
  - DYSKINESIA [None]
  - TREMOR [None]
